FAERS Safety Report 6134329-6 (Version None)
Quarter: 2009Q1

REPORT INFORMATION
  Report Type: 
  Country: None (occurrence: None)
  Receive Date: 20090327
  Receipt Date: 20090317
  Transmission Date: 20090719
  Serious: Yes (Hospitalization, Other)
  Sender: FDA-Public Use
  Company Number: US-RANBAXY-2009US-22683

PATIENT

DRUGS (1)
  1. CIPROFLOXACIN [Suspect]
     Indication: URINARY TRACT INFECTION
     Dosage: 500 MG, UNK
     Route: 048

REACTIONS (5)
  - BURNS FIRST DEGREE [None]
  - OEDEMA PERIPHERAL [None]
  - PRURITUS [None]
  - STEVENS-JOHNSON SYNDROME [None]
  - URTICARIA [None]
